FAERS Safety Report 8831977 (Version 3)
Quarter: 2015Q3

REPORT INFORMATION
  Report Type: Report from Study
  Country: US (occurrence: US)
  Receive Date: 20121009
  Receipt Date: 20150819
  Transmission Date: 20151125
  Serious: Yes (Life-Threatening)
  Sender: FDA-Public Use
  Company Number: US-ROCHE-1141621

PATIENT
  Age: 68 Year
  Sex: Female
  Weight: 46.76 kg

DRUGS (9)
  1. TYLENOL [Concomitant]
     Active Substance: ACETAMINOPHEN
     Route: 048
  2. RITUXAN [Suspect]
     Active Substance: RITUXIMAB
     Indication: CHRONIC LYMPHOCYTIC LEUKAEMIA
     Dosage: 4TH WEEK
     Route: 042
     Dates: start: 20001026
  3. RITUXAN [Suspect]
     Active Substance: RITUXIMAB
     Dosage: 3RD WEEK
     Route: 042
     Dates: start: 20001018
  4. RITUXAN [Suspect]
     Active Substance: RITUXIMAB
     Dosage: 2ND WEEK
     Route: 042
     Dates: start: 20001011
  5. RITUXAN [Suspect]
     Active Substance: RITUXIMAB
     Dosage: 1ST WEEK?375 (MG/M2)-560 MG
     Route: 042
     Dates: start: 20001005
  6. MISOPROSTOL. [Concomitant]
     Active Substance: MISOPROSTOL
  7. ESTRONE [Concomitant]
     Active Substance: ESTRONE
  8. SALSALATE. [Concomitant]
     Active Substance: SALSALATE
  9. BENADRYL [Concomitant]
     Active Substance: DIPHENHYDRAMINE HYDROCHLORIDE
     Route: 048

REACTIONS (6)
  - Herpes zoster [Unknown]
  - Chronic obstructive pulmonary disease [Not Recovered/Not Resolved]
  - Lymphadenopathy [Unknown]
  - Thrombocytopenia [Unknown]
  - Post herpetic neuralgia [Unknown]
  - Splenomegaly [Unknown]

NARRATIVE: CASE EVENT DATE: 200106
